FAERS Safety Report 13775396 (Version 2)
Quarter: 2017Q3

REPORT INFORMATION
  Report Type: Spontaneous
  Country: US (occurrence: US)
  Receive Date: 20170721
  Receipt Date: 20170803
  Transmission Date: 20171127
  Serious: Yes (Other)
  Sender: FDA-Public Use
  Company Number: US-AMGEN-USASP2017108293

PATIENT
  Age: 76 Year
  Sex: Male

DRUGS (6)
  1. AMIODARONE [Suspect]
     Active Substance: AMIODARONE
     Indication: PRODUCT USED FOR UNKNOWN INDICATION
     Dosage: 400 MG TAB (1/2 TAB PO BID)
     Route: 048
  2. MORPHINE SULFATE. [Suspect]
     Active Substance: MORPHINE SULFATE
     Indication: PRODUCT USED FOR UNKNOWN INDICATION
     Dosage: UNK
     Route: 065
  3. METHOTREXATE. [Suspect]
     Active Substance: METHOTREXATE
     Indication: PRODUCT USED FOR UNKNOWN INDICATION
     Dosage: UNK
     Route: 065
  4. ENBREL [Suspect]
     Active Substance: ETANERCEPT
     Indication: PRODUCT USED FOR UNKNOWN INDICATION
     Dosage: UNK
     Route: 065
  5. GABAPENTIN. [Suspect]
     Active Substance: GABAPENTIN
     Indication: PRODUCT USED FOR UNKNOWN INDICATION
     Dosage: 300 MG, (2 TAB PO IN THE AM, 1 TAB IN THE PM)
     Route: 065
  6. XELJANZ [Suspect]
     Active Substance: TOFACITINIB CITRATE
     Indication: PRODUCT USED FOR UNKNOWN INDICATION
     Dosage: 5 MG, UNK
     Route: 048

REACTIONS (30)
  - Neuropathy peripheral [Unknown]
  - Haematocrit abnormal [Unknown]
  - Red blood cell sedimentation rate abnormal [Unknown]
  - Arthralgia [Unknown]
  - Vitamin D deficiency [Unknown]
  - Rheumatoid factor increased [Unknown]
  - Glomerular filtration rate abnormal [Unknown]
  - C-reactive protein abnormal [Unknown]
  - Injection site bruising [Unknown]
  - Hand deformity [Unknown]
  - Grip strength decreased [Unknown]
  - Haemoglobin abnormal [Unknown]
  - Mean cell haemoglobin concentration abnormal [Unknown]
  - Cerebrovascular accident [Unknown]
  - Mean cell haemoglobin decreased [Unknown]
  - Infection [Unknown]
  - Leg amputation [Unknown]
  - Musculoskeletal stiffness [Unknown]
  - Anti-cyclic citrullinated peptide antibody positive [Unknown]
  - Swelling [Unknown]
  - Nodule [Unknown]
  - Blood creatinine abnormal [Unknown]
  - Chronic kidney disease [Unknown]
  - Hypersensitivity [Unknown]
  - Rash [Unknown]
  - Blood calcium abnormal [Unknown]
  - Anaemia [Unknown]
  - Joint contracture [Unknown]
  - Joint swelling [Unknown]
  - Peripheral arterial occlusive disease [Unknown]

NARRATIVE: CASE EVENT DATE: 2011
